FAERS Safety Report 18693114 (Version 4)
Quarter: 2021Q1

REPORT INFORMATION
  Report Type: Spontaneous
  Country: PL (occurrence: PL)
  Receive Date: 20210104
  Receipt Date: 20210203
  Transmission Date: 20210419
  Serious: Yes (Other)
  Sender: FDA-Public Use
  Company Number: PL-CELLTRION INC.-2020PL034746

PATIENT

DRUGS (1)
  1. INFLIXIMAB (UNKNOWN) [Suspect]
     Active Substance: INFLIXIMAB
     Indication: COLITIS ULCERATIVE
     Dosage: UNK

REACTIONS (7)
  - Chest pain [Unknown]
  - Oral herpes [Unknown]
  - Infection [Unknown]
  - Cell-mediated immune deficiency [Unknown]
  - Pharyngitis [Unknown]
  - Oesophagitis [Unknown]
  - Herpes simplex [Recovering/Resolving]
